FAERS Safety Report 5249905-2 (Version None)
Quarter: 2007Q1

REPORT INFORMATION
  Report Type: 
  Country: None (occurrence: None)
  Receive Date: 20070228
  Receipt Date: 20060619
  Transmission Date: 20070707
  Serious: No
  Sender: FDA-Public Use
  Company Number: US-GLAXOSMITHKLINE-A0560325A

PATIENT
  Age: 62 Year
  Sex: Female
  Weight: 46.4 kg

DRUGS (3)
  1. LAMICTAL [Suspect]
     Indication: BIPOLAR DISORDER
     Dosage: 150MG PER DAY
     Route: 048
     Dates: start: 20050101
  2. PAROXETINE HCL [Suspect]
     Indication: BIPOLAR DISORDER
     Dosage: 1TAB PER DAY
     Route: 048
  3. PAXIL CR [Suspect]
     Indication: BIPOLAR DISORDER
     Dosage: 25MG PER DAY
     Route: 048

REACTIONS (3)
  - INSOMNIA [None]
  - STOMACH DISCOMFORT [None]
  - WEIGHT DECREASED [None]
